FAERS Safety Report 17482204 (Version 1)
Quarter: 2020Q1

REPORT INFORMATION
  Report Type: Spontaneous
  Country: US (occurrence: US)
  Receive Date: 20200302
  Receipt Date: 20200302
  Transmission Date: 20200409
  Serious: Yes (Hospitalization)
  Sender: FDA-Public Use
  Company Number: US-ELI_LILLY_AND_COMPANY-US202002011335

PATIENT
  Sex: Male

DRUGS (4)
  1. INSULIN HUMAN [Suspect]
     Active Substance: INSULIN HUMAN
     Dosage: 70 U, EACH EVENING
     Route: 058
     Dates: start: 2010
  2. VICTOZA [Concomitant]
     Active Substance: LIRAGLUTIDE
     Indication: TYPE 2 DIABETES MELLITUS
     Dosage: 18 U, EACH MORNING
  3. NOVOLOG [Concomitant]
     Active Substance: INSULIN ASPART
     Indication: TYPE 2 DIABETES MELLITUS
     Dosage: 20 U, OTHER (EACH MEAL)
  4. INSULIN HUMAN [Suspect]
     Active Substance: INSULIN HUMAN
     Indication: TYPE 2 DIABETES MELLITUS
     Dosage: 90 U, EACH MORNING
     Route: 058
     Dates: start: 2010

REACTIONS (5)
  - Headache [Unknown]
  - Blood glucose increased [Unknown]
  - Dizziness [Unknown]
  - Hyperhidrosis [Unknown]
  - Blood glucose decreased [Unknown]
